FAERS Safety Report 8458344-2 (Version None)
Quarter: 2012Q2

REPORT INFORMATION
  Report Type: 
  Country: None (occurrence: None)
  Receive Date: 20120615
  Receipt Date: 20120604
  Transmission Date: 20120825
  Serious: Yes (Hospitalization, Other)
  Sender: FDA-Public Use
  Company Number: 2012P1017318

PATIENT
  Age: 70 Year
  Sex: Male
  Weight: 83.9154 kg

DRUGS (7)
  1. FISH OIL [Concomitant]
  2. CO Q 10 [Concomitant]
  3. ASPIRIN [Concomitant]
  4. PRINIVIL [Concomitant]
  5. VITAMIN B COMPLEX CAP [Concomitant]
  6. CEPHALEXIN [Suspect]
     Indication: SKIN LESION EXCISION
     Dosage: 500 MG, TID,
     Dates: start: 20120101, end: 20120101
  7. TOPROL-XL [Concomitant]

REACTIONS (20)
  - PULMONARY OEDEMA [None]
  - DIARRHOEA [None]
  - VENTRICULAR EXTRASYSTOLES [None]
  - ABDOMINAL PAIN [None]
  - WEIGHT INCREASED [None]
  - ABDOMINAL DISTENSION [None]
  - OEDEMA PERIPHERAL [None]
  - DYSPNOEA [None]
  - CARDIOMYOPATHY [None]
  - NORMOCHROMIC NORMOCYTIC ANAEMIA [None]
  - GASTROINTESTINAL DISORDER [None]
  - CONSTIPATION [None]
  - SYSTOLIC DYSFUNCTION [None]
  - LEFT VENTRICULAR HYPERTROPHY [None]
  - GAZE PALSY [None]
  - EJECTION FRACTION DECREASED [None]
  - HYPERTENSION [None]
  - ASTHENIA [None]
  - SKIN CANCER [None]
  - SWELLING [None]
